FAERS Safety Report 6992545-5 (Version None)
Quarter: 2010Q3

REPORT INFORMATION
  Report Type: 
  Country: None (occurrence: None)
  Receive Date: 20100917
  Receipt Date: 20100908
  Transmission Date: 20110219
  Serious: Yes (Hospitalization)
  Sender: FDA-Public Use
  Company Number: JP-ROCHE-680145

PATIENT
  Age: 56 Year
  Sex: Male

DRUGS (16)
  1. TOCILIZUMAB [Suspect]
     Indication: RHEUMATOID ARTHRITIS
     Route: 041
     Dates: start: 20090717, end: 20090717
  2. TOCILIZUMAB [Suspect]
     Route: 041
     Dates: start: 20090818, end: 20090818
  3. TOCILIZUMAB [Suspect]
     Route: 041
     Dates: start: 20090915, end: 20090915
  4. TOCILIZUMAB [Suspect]
     Route: 041
     Dates: start: 20091013, end: 20091013
  5. ALENDRONATE SODIUM [Suspect]
     Indication: PRODUCT USED FOR UNKNOWN INDICATION
     Dosage: DRUG NAME REPORTED AS ALENDRONATE SODIUM HYDRATE (ALENDRONATE SODIUM HYDRATE)
     Route: 048
     Dates: end: 20091209
  6. COTRIM [Suspect]
     Indication: PRODUCT USED FOR UNKNOWN INDICATION
     Dosage: DOSE FORM: PERORAL AGENT
     Route: 048
     Dates: end: 20091209
  7. BREDININ [Concomitant]
     Route: 048
  8. ISCOTIN [Concomitant]
     Route: 048
  9. PREDONINE [Concomitant]
     Route: 048
  10. PROMAC [Concomitant]
     Dosage: FORM: GRANULATED POWDER
     Route: 048
  11. MINOCYCLINE HCL [Concomitant]
     Dosage: FORM: PERORAL AGENT
     Route: 048
  12. MYSLEE [Concomitant]
     Route: 048
  13. ONEALFA [Concomitant]
     Route: 048
  14. ALOSENN [Concomitant]
     Dosage: FORM: GRANULATED POWDER
     Route: 048
  15. OMEPRAL [Concomitant]
     Dosage: FORM: ENTERIC COATING DRUG
     Route: 048
  16. PYDOXAL [Concomitant]
     Route: 048

REACTIONS (1)
  - LEUKOPENIA [None]
